FAERS Safety Report 18916130 (Version 1)
Quarter: 2021Q1

REPORT INFORMATION
  Report Type: Spontaneous
  Country: US (occurrence: US)
  Receive Date: 20210218
  Receipt Date: 20210218
  Transmission Date: 20210420
  Serious: No
  Sender: FDA-Public Use
  Company Number: None

PATIENT
  Age: 67 Year
  Sex: Male
  Weight: 78.47 kg

DRUGS (2)
  1. HALDOL DECANOATE [Suspect]
     Active Substance: HALOPERIDOL DECANOATE
  2. VANISHPOINT SYRINGE [Suspect]
     Active Substance: DEVICE
     Dosage: MOFEL # 10361

REACTIONS (2)
  - Incorrect dose administered [None]
  - Syringe issue [None]

NARRATIVE: CASE EVENT DATE: 20210217
